FAERS Safety Report 24254209 (Version 1)
Quarter: 2024Q3

REPORT INFORMATION
  Report Type: Report from Study
  Country: IT (occurrence: IT)
  Receive Date: 20240827
  Receipt Date: 20240827
  Transmission Date: 20241016
  Serious: Yes (Other)
  Sender: PFIZER
  Company Number: IT-PFIZER INC-202400243962

PATIENT

DRUGS (2)
  1. GEMCITABINE HYDROCHLORIDE [Suspect]
     Active Substance: GEMCITABINE HYDROCHLORIDE
     Indication: Brain neoplasm
     Dosage: EVERY 14-28 DAYS FOR 1-6 CYCLES
  2. OXALIPLATIN [Suspect]
     Active Substance: OXALIPLATIN
     Indication: Brain neoplasm
     Dosage: EVERY 14-28 DAYS FOR 1-6 CYCLES

REACTIONS (1)
  - Platelet toxicity [Unknown]
